FAERS Safety Report 20833112 (Version 2)
Quarter: 2022Q2

REPORT INFORMATION
  Report Type: Report from Study
  Country: PL (occurrence: PL)
  Receive Date: 20220516
  Receipt Date: 20220527
  Transmission Date: 20220720
  Serious: Yes (Hospitalization)
  Sender: FDA-Public Use
  Company Number: PL-BAYER-2022A068514

PATIENT
  Age: 44 Year
  Sex: Female

DRUGS (1)
  1. BETAFERON [Suspect]
     Active Substance: INTERFERON BETA-1B
     Indication: Multiple sclerosis
     Dosage: UNK
     Route: 058
     Dates: start: 20220308

REACTIONS (7)
  - Hospitalisation [None]
  - Drug ineffective [Not Recovered/Not Resolved]
  - Paraesthesia [None]
  - Memory impairment [None]
  - Disturbance in attention [None]
  - Headache [None]
  - Asthenia [None]

NARRATIVE: CASE EVENT DATE: 20220405
